FAERS Safety Report 10007324 (Version 3)
Quarter: 2014Q1

REPORT INFORMATION
  Report Type: Spontaneous
  Country: JP (occurrence: None)
  Receive Date: 20140311
  Receipt Date: 20140321
  Transmission Date: 20141002
  Serious: Yes (Hospitalization, Other)
  Sender: FDA-Public Use
  Company Number: JP-014870

PATIENT
  Age: 77 Year
  Sex: Male

DRUGS (6)
  1. DEGARELIX (GONAX) 240 MG [Suspect]
     Indication: PROSTATE CANCER
     Route: 058
     Dates: start: 20140125, end: 20140125
  2. UNISIA [Concomitant]
  3. OMEPRAL / 00661201/ [Concomitant]
  4. FLIVAS [Concomitant]
  5. CASODEX [Concomitant]
  6. WARFARIN [Concomitant]

REACTIONS (3)
  - Cardiac failure congestive [None]
  - Mitral valve incompetence [None]
  - Tricuspid valve incompetence [None]
